FAERS Safety Report 10100456 (Version 1)
Quarter: 2014Q2

REPORT INFORMATION
  Report Type: Spontaneous
  Country: US (occurrence: US)
  Receive Date: 20140423
  Receipt Date: 20140423
  Transmission Date: 20141212
  Serious: No
  Sender: FDA-Public Use
  Company Number: US-ENDO PHARMACEUTICALS INC.-OXAT20140007

PATIENT
  Sex: Male

DRUGS (1)
  1. OXYCODONE/ACETAMINOPHEN TABLETS 10MG/325MG [Suspect]
     Indication: MUSCULOSKELETAL PAIN
     Dosage: 10/325 MG
     Route: 048

REACTIONS (1)
  - Drug ineffective [Not Recovered/Not Resolved]
